FAERS Safety Report 18367009 (Version 2)
Quarter: 2020Q4

REPORT INFORMATION
  Report Type: Spontaneous
  Country: US (occurrence: US)
  Receive Date: 20201009
  Receipt Date: 20201105
  Transmission Date: 20210114
  Serious: Yes (Hospitalization, Other)
  Sender: FDA-Public Use
  Company Number: US-ASTRAZENECA-2020SF27891

PATIENT
  Age: 21564 Day
  Sex: Male
  Weight: 98 kg

DRUGS (34)
  1. FARXIGA [Suspect]
     Active Substance: DAPAGLIFLOZIN PROPANEDIOL
     Indication: TYPE 2 DIABETES MELLITUS
     Route: 048
     Dates: start: 20170608, end: 201712
  2. FARXIGA [Suspect]
     Active Substance: DAPAGLIFLOZIN PROPANEDIOL
     Indication: BLOOD PRESSURE DECREASED
     Route: 048
     Dates: start: 20170608, end: 201712
  3. FARXIGA [Suspect]
     Active Substance: DAPAGLIFLOZIN PROPANEDIOL
     Indication: WEIGHT DECREASED
     Route: 048
     Dates: start: 20170709
  4. ZOSYN [Concomitant]
     Active Substance: PIPERACILLIN SODIUM\TAZOBACTAM SODIUM
  5. LISINOPRIL. [Concomitant]
     Active Substance: LISINOPRIL
  6. HYDROMORPHONE [Concomitant]
     Active Substance: HYDROMORPHONE
  7. POTASSIUM CHLORIDE. [Concomitant]
     Active Substance: POTASSIUM CHLORIDE
  8. VIAGRA [Concomitant]
     Active Substance: SILDENAFIL CITRATE
  9. ENOXAPARIN [Concomitant]
     Active Substance: ENOXAPARIN
  10. PIPERACILLIN. [Concomitant]
     Active Substance: PIPERACILLIN SODIUM
  11. FARXIGA [Suspect]
     Active Substance: DAPAGLIFLOZIN PROPANEDIOL
     Indication: WEIGHT DECREASED
     Route: 048
     Dates: start: 20170608, end: 201712
  12. CIPRO [Concomitant]
     Active Substance: CIPROFLOXACIN HYDROCHLORIDE
  13. AUGMENTIN [Concomitant]
     Active Substance: AMOXICILLIN\CLAVULANATE POTASSIUM
  14. FLAGYL [Concomitant]
     Active Substance: METRONIDAZOLE\METRONIDAZOLE HYDROCHLORIDE
  15. FAMOTIDINE. [Concomitant]
     Active Substance: FAMOTIDINE
  16. COLACE [Concomitant]
     Active Substance: DOCUSATE SODIUM
  17. NARCAN [Concomitant]
     Active Substance: NALOXONE HYDROCHLORIDE
  18. PHENERGAN [Concomitant]
     Active Substance: PROMETHAZINE HYDROCHLORIDE
  19. ZOFRAN [Concomitant]
     Active Substance: ONDANSETRON HYDROCHLORIDE
  20. METOPROLOL. [Concomitant]
     Active Substance: METOPROLOL
  21. DIGOXIN. [Concomitant]
     Active Substance: DIGOXIN
  22. FARXIGA [Suspect]
     Active Substance: DAPAGLIFLOZIN PROPANEDIOL
     Indication: BLOOD PRESSURE DECREASED
     Route: 048
     Dates: start: 20170709
  23. PERCOCET [Concomitant]
     Active Substance: ACETAMINOPHEN\OXYCODONE HYDROCHLORIDE
  24. OXYCODONE [Concomitant]
     Active Substance: OXYCODONE
  25. DILTIAZEM. [Concomitant]
     Active Substance: DILTIAZEM
  26. ONDANSETRON [Concomitant]
     Active Substance: ONDANSETRON
  27. MORPHINE [Concomitant]
     Active Substance: MORPHINE
  28. FARXIGA [Suspect]
     Active Substance: DAPAGLIFLOZIN PROPANEDIOL
     Indication: TYPE 2 DIABETES MELLITUS
     Route: 048
     Dates: start: 20170709
  29. SODIUM CHLORIDE. [Concomitant]
     Active Substance: SODIUM CHLORIDE
  30. ACETAMINOPHEN. [Concomitant]
     Active Substance: ACETAMINOPHEN
  31. IBUPROFEN. [Concomitant]
     Active Substance: IBUPROFEN
  32. DEXTROSE. [Concomitant]
     Active Substance: DEXTROSE
  33. NOVOLOG [Concomitant]
     Active Substance: INSULIN ASPART
  34. RESTORIL [Concomitant]
     Active Substance: TEMAZEPAM

REACTIONS (14)
  - Rectal abscess [Unknown]
  - Perirectal abscess [Unknown]
  - Scrotal cellulitis [Unknown]
  - Abscess [Unknown]
  - Sepsis [Unknown]
  - Leukocytosis [Unknown]
  - Cellulitis [Unknown]
  - Fournier^s gangrene [Unknown]
  - Anal abscess [Unknown]
  - Perineal abscess [Unknown]
  - Chronic kidney disease [Unknown]
  - Renal failure [Unknown]
  - Groin abscess [Unknown]
  - Necrotising fasciitis [Unknown]

NARRATIVE: CASE EVENT DATE: 20170709
